FAERS Safety Report 6174992-7 (Version None)
Quarter: 2009Q2

REPORT INFORMATION
  Report Type: 
  Country: None (occurrence: None)
  Receive Date: 20090430
  Receipt Date: 20081110
  Transmission Date: 20091009
  Serious: No
  Sender: FDA-Public Use
  Company Number: US-ASTRAZENECA-2008UW25103

PATIENT
  Age: 34 Year
  Sex: Female
  Weight: 52.2 kg

DRUGS (1)
  1. NEXIUM [Suspect]
     Indication: SENSATION OF FOREIGN BODY
     Dosage: 20 MG
     Route: 048

REACTIONS (2)
  - ILL-DEFINED DISORDER [None]
  - SALIVA ALTERED [None]
